FAERS Safety Report 24843440 (Version 2)
Quarter: 2025Q1

REPORT INFORMATION
  Report Type: Spontaneous
  Country: PT (occurrence: PT)
  Receive Date: 20250115
  Receipt Date: 20250204
  Transmission Date: 20250409
  Serious: Yes (Hospitalization, Other)
  Sender: AUROBINDO
  Company Number: PT-SUN PHARMACEUTICAL INDUSTRIES LTD-2024R1-487169

PATIENT
  Age: 69 Year
  Sex: Female

DRUGS (2)
  1. APIXABAN [Suspect]
     Active Substance: APIXABAN
     Indication: Anticoagulant therapy
     Route: 065
  2. APIXABAN [Suspect]
     Active Substance: APIXABAN
     Indication: Atrial fibrillation

REACTIONS (3)
  - Thrombosis with thrombocytopenia syndrome [Recovered/Resolved]
  - Thrombosis [Recovered/Resolved]
  - Drug ineffective [Unknown]
